FAERS Safety Report 4834663-3 (Version None)
Quarter: 2005Q4

REPORT INFORMATION
  Report Type: 
  Country: None (occurrence: None)
  Receive Date: 20051122
  Receipt Date: 20050613
  Transmission Date: 20060501
  Serious: No
  Sender: FDA-Public Use
  Company Number: US-BRISTOL-MYERS SQUIBB COMPANY-13001177

PATIENT
  Age: 56 Year
  Sex: Female
  Weight: 75 kg

DRUGS (3)
  1. PRAVACHOL [Suspect]
     Indication: BLOOD CHOLESTEROL INCREASED
     Dates: start: 20041001, end: 20050101
  2. PREVACID [Concomitant]
  3. HYDROCHLOROTHIAZIDE [Concomitant]

REACTIONS (2)
  - ASTHENIA [None]
  - PAIN [None]
